FAERS Safety Report 8991557 (Version 1)
Quarter: 2012Q4

REPORT INFORMATION
  Report Type: 
  Country: US (occurrence: US)
  Receive Date: 20121231
  Receipt Date: 20121231
  Transmission Date: 20130627
  Serious: No
  Sender: FDA-Public Use
  Company Number: US-BIOGENIDEC-2012BI063057

PATIENT
  Age: 37 Year
  Sex: Female

DRUGS (2)
  1. TYSABRI [Suspect]
     Indication: MULTIPLE SCLEROSIS
     Route: 042
     Dates: start: 20120531
  2. AVONEX [Concomitant]
     Indication: MULTIPLE SCLEROSIS
     Route: 030
     Dates: start: 20101010

REACTIONS (6)
  - Swollen tongue [Recovered/Resolved]
  - Fungal infection [Recovered/Resolved]
  - Candidiasis [Not Recovered/Not Resolved]
  - Oral herpes [Recovered/Resolved]
  - Upper respiratory tract infection [Not Recovered/Not Resolved]
  - Urinary tract infection [Recovered/Resolved]
